FAERS Safety Report 8150383-4 (Version None)
Quarter: 2012Q1

REPORT INFORMATION
  Report Type: 
  Country: None (occurrence: None)
  Receive Date: 20120220
  Receipt Date: 20120208
  Transmission Date: 20120608
  Serious: Yes (Hospitalization)
  Sender: FDA-Public Use
  Company Number: CA-PFIZER INC-2012001228

PATIENT
  Age: 57 Year
  Sex: Female

DRUGS (3)
  1. GABAPENTIN [Suspect]
     Indication: ANXIETY
  2. GABAPENTIN [Suspect]
     Indication: BACK PAIN
     Dosage: 300 MG, 1X/DAY
     Route: 048
     Dates: start: 20110501, end: 20111008
  3. GABAPENTIN [Suspect]
     Indication: INSOMNIA
     Dosage: UNK
     Route: 048
     Dates: start: 20111101, end: 20111101

REACTIONS (2)
  - IRRITABLE BOWEL SYNDROME [None]
  - HYPERCHLORHYDRIA [None]
